FAERS Safety Report 6987062-2 (Version None)
Quarter: 2010Q3

REPORT INFORMATION
  Report Type: 
  Country: None (occurrence: None)
  Receive Date: 20100916
  Receipt Date: 20100913
  Transmission Date: 20110219
  Serious: No
  Sender: FDA-Public Use
  Company Number: US-TEVA-248410USA

PATIENT
  Sex: Male
  Weight: 77.18 kg

DRUGS (3)
  1. ALBUTEROL SULFATE AUTOHALER [Suspect]
     Indication: CHRONIC OBSTRUCTIVE PULMONARY DISEASE
     Dosage: 2 PUFFS
     Route: 055
     Dates: start: 20100913
  2. LOVASTATIN [Concomitant]
  3. TIOTROPIUM BROMIDE [Concomitant]

REACTIONS (1)
  - COUGH [None]
